FAERS Safety Report 6285974-9 (Version None)
Quarter: 2009Q3

REPORT INFORMATION
  Report Type: 
  Country: None (occurrence: None)
  Receive Date: 20090728
  Receipt Date: 20090720
  Transmission Date: 20100115
  Serious: Yes (Other)
  Sender: FDA-Public Use
  Company Number: US-JNJFOC-20090707181

PATIENT
  Sex: Female
  Weight: 56.25 kg

DRUGS (2)
  1. DURAGESIC-100 [Suspect]
     Indication: CANCER PAIN
     Dosage: 100 UG/HR AND 25 UG/HR
     Route: 062
  2. CHEMOTHERAPY, NOS [Suspect]
     Indication: BREAST CANCER
     Route: 065

REACTIONS (5)
  - BREAST CANCER METASTATIC [None]
  - HYPOAESTHESIA [None]
  - PAIN [None]
  - PRODUCT QUALITY ISSUE [None]
  - WEIGHT DECREASED [None]
